FAERS Safety Report 8027675-2 (Version None)
Quarter: 2011Q4

REPORT INFORMATION
  Report Type: 
  Country: None (occurrence: None)
  Receive Date: 20111130
  Receipt Date: 20110720
  Transmission Date: 20120403
  Serious: Yes (Other)
  Sender: FDA-Public Use
  Company Number: US201005000736

PATIENT
  Age: 70 Year
  Sex: Male
  Weight: 123.4 kg

DRUGS (12)
  1. EXENATIDE UNK STRENGTH PEN, DISPOSABLE DEVICE (EXENATIDE PEN (UNKNOWN [Concomitant]
  2. LANTUS [Concomitant]
  3. GLYBURIDE [Concomitant]
  4. METOPROLOL TARTRATE [Concomitant]
  5. BYETTA [Suspect]
     Indication: DIABETES MELLITUS
  6. ACTOS [Concomitant]
  7. GEMFIBROZIL [Concomitant]
  8. JANUVIA (SITAGLIPITIN PHOSPHATE) [Concomitant]
  9. LIPITOR [Concomitant]
  10. IRON (IRON) [Concomitant]
  11. TRILPIX (CHOLINE FENOFIBRATE) [Concomitant]
  12. VASOTEC /00574902/ (ENALAPRIL MALEATE) [Concomitant]

REACTIONS (5)
  - PANCREATITIS [None]
  - HAEMATURIA [None]
  - OFF LABEL USE [None]
  - RENAL FAILURE [None]
  - RENAL DISORDER [None]
